FAERS Safety Report 8072301-X (Version None)
Quarter: 2012Q1

REPORT INFORMATION
  Report Type: 
  Country: None (occurrence: None)
  Receive Date: 20120126
  Receipt Date: 20120118
  Transmission Date: 20120608
  Serious: Yes (Hospitalization, Other)
  Sender: FDA-Public Use
  Company Number: FR-ASTELLAS-2012EU000551

PATIENT
  Sex: Male

DRUGS (5)
  1. MYCOPHENOLATE MOFETIL (CELLCEPT) [Concomitant]
     Dosage: UNK
     Route: 065
  2. CORTANCYL [Concomitant]
     Dosage: UNK
     Route: 065
  3. CORTICOSTEROID NOS [Concomitant]
     Dosage: 5 MG, UNKNOWN/D
     Route: 065
  4. TACROLIMUS [Suspect]
     Indication: RENAL TRANSPLANT
     Dosage: 9 MG, UNKNOWN/D
     Route: 048
     Dates: start: 20111003, end: 20111215
  5. PROGRAF [Suspect]
     Indication: RENAL TRANSPLANT
     Dosage: 9 MG, UNKNOWN/D
     Route: 048

REACTIONS (2)
  - HERPES ZOSTER OPHTHALMIC [None]
  - COMPLICATIONS OF TRANSPLANTED KIDNEY [None]
